FAERS Safety Report 13516834 (Version 2)
Quarter: 2017Q2

REPORT INFORMATION
  Report Type: Spontaneous
  Country: US (occurrence: US)
  Receive Date: 20170505
  Receipt Date: 20170614
  Transmission Date: 20170830
  Serious: No
  Sender: FDA-Public Use
  Company Number: US-PFIZER INC-2017188644

PATIENT
  Age: 72 Year
  Sex: Female
  Weight: 81 kg

DRUGS (3)
  1. PREMARIN [Suspect]
     Active Substance: ESTROGENS, CONJUGATED
     Dosage: UNK UNK, DAILY
     Dates: start: 20161130, end: 2016
  2. PREMARIN [Suspect]
     Active Substance: ESTROGENS, CONJUGATED
     Dosage: UNK
     Dates: start: 20170520, end: 2017
  3. PREMARIN [Suspect]
     Active Substance: ESTROGENS, CONJUGATED
     Dosage: 1 G, TWICE A WEEK
     Route: 067
     Dates: start: 2016, end: 20170306

REACTIONS (3)
  - Vulvovaginal burning sensation [Unknown]
  - Vulvovaginal discomfort [Recovered/Resolved]
  - Persistent genital arousal disorder [Not Recovered/Not Resolved]

NARRATIVE: CASE EVENT DATE: 20161130
